FAERS Safety Report 4774919-6 (Version None)
Quarter: 2005Q3

REPORT INFORMATION
  Report Type: 
  Country: None (occurrence: None)
  Receive Date: 20050921
  Receipt Date: 20041129
  Transmission Date: 20060218
  Serious: Yes (Other)
  Sender: FDA-Public Use
  Company Number: PHBS2004JP16102

PATIENT
  Age: 13 Year
  Sex: Female
  Weight: 85 kg

DRUGS (3)
  1. EXCEGRAN [Suspect]
     Indication: POST-TRAUMATIC EPILEPSY
     Dosage: 150 MG/DAY
     Route: 048
     Dates: start: 20041025, end: 20050114
  2. TEGRETOL [Suspect]
     Indication: POST-TRAUMATIC EPILEPSY
     Dosage: 400 MG/DAY
     Route: 048
     Dates: start: 20040105, end: 20050708
  3. ALEVIATIN [Concomitant]
     Indication: POST-TRAUMATIC EPILEPSY
     Dosage: 200 MG, UNK
     Route: 048
     Dates: start: 19941001, end: 20040123

REACTIONS (9)
  - CATARACT [None]
  - CEREBRAL HAEMORRHAGE [None]
  - CEREBRAL INFARCTION [None]
  - CONVULSION [None]
  - DRUG INEFFECTIVE [None]
  - LENS DISORDER [None]
  - LENTICULAR OPACITIES [None]
  - ROAD TRAFFIC ACCIDENT [None]
  - VISUAL DISTURBANCE [None]
